FAERS Safety Report 4616324-9 (Version None)
Quarter: 2005Q1

REPORT INFORMATION
  Report Type: 
  Country: None (occurrence: None)
  Receive Date: 20050321
  Receipt Date: 20050314
  Transmission Date: 20050727
  Serious: Yes (Other)
  Sender: FDA-Public Use
  Company Number: 2005032696

PATIENT
  Age: 79 Year
  Sex: Female

DRUGS (4)
  1. MACUGEN [Suspect]
     Indication: MACULAR DEGENERATION
     Dosage: 0.3 MG (0.3 MG, 1 IN 6 WK)INTRAVITREOUS
     Dates: start: 20050210, end: 20050210
  2. MULTIVITAMIN (ASCORBIC ACID, ERGOCLACIFEROL, FOLIC ACID , NICOTINAMIDE [Concomitant]
  3. LIPITOR [Concomitant]
  4. LOTREL [Concomitant]

REACTIONS (3)
  - INTRAOCULAR PRESSURE INCREASED [None]
  - MEDICATION ERROR [None]
  - VISUAL ACUITY REDUCED [None]
